FAERS Safety Report 14141242 (Version 1)
Quarter: 2017Q4

REPORT INFORMATION
  Report Type: Spontaneous
  Country: US (occurrence: US)
  Receive Date: 20171030
  Receipt Date: 20171030
  Transmission Date: 20180321
  Serious: No
  Sender: FDA-Public Use
  Company Number: US-ASTRAZENECA-2017SF04266

PATIENT
  Sex: Male
  Weight: 174.6 kg

DRUGS (10)
  1. SYMBICORT [Suspect]
     Active Substance: BUDESONIDE\FORMOTEROL FUMARATE DIHYDRATE
     Indication: ASTHMA
     Dosage: 160/4.5 MICROGRAMS, 2 PUFFS TWICE DAILY
     Route: 055
     Dates: start: 2009
  2. FUROSEMIDE. [Concomitant]
     Active Substance: FUROSEMIDE
     Indication: INFECTION
     Route: 048
  3. LEVOTHYROXINE. [Concomitant]
     Active Substance: LEVOTHYROXINE
     Indication: THYROID THERAPY
     Route: 048
  4. SPIRONOLACTONE. [Concomitant]
     Active Substance: SPIRONOLACTONE
     Route: 048
  5. CRESTOR [Suspect]
     Active Substance: ROSUVASTATIN CALCIUM
     Indication: THROMBOSIS
     Route: 048
     Dates: start: 2012, end: 2016
  6. AMLODIPINE [Concomitant]
     Active Substance: AMLODIPINE BESYLATE
     Route: 048
  7. ESCITALOPRAM [Concomitant]
     Active Substance: ESCITALOPRAM OXALATE
     Indication: DEPRESSION
     Route: 048
  8. CRESTOR [Suspect]
     Active Substance: ROSUVASTATIN CALCIUM
     Indication: THROMBOSIS
     Dosage: GENERIC CRESTOR, 20 MG DAILY
     Route: 048
     Dates: start: 2016
  9. VALSARTAN. [Concomitant]
     Active Substance: VALSARTAN
     Route: 048
  10. ASPIRIN. [Concomitant]
     Active Substance: ASPIRIN
     Route: 048

REACTIONS (7)
  - Weight decreased [Unknown]
  - Obesity [Unknown]
  - Intentional product misuse [Recovered/Resolved]
  - Memory impairment [Not Recovered/Not Resolved]
  - Device failure [Unknown]
  - Drug dose omission [Unknown]
  - Off label use of device [Unknown]
